FAERS Safety Report 9070624 (Version 1)
Quarter: 2013Q1

REPORT INFORMATION
  Report Type: Spontaneous
  Country: US (occurrence: US)
  Receive Date: 20130206
  Receipt Date: 20130206
  Transmission Date: 20140127
  Serious: Yes (Other)
  Sender: FDA-Public Use
  Company Number: CHPA2013US001745

PATIENT
  Age: 10 Year
  Sex: Male

DRUGS (2)
  1. TRIAMINIC DAY TIME COLD + COUGH [Suspect]
     Indication: NASAL CONGESTION
     Dosage: 1 TSP, UNK
     Route: 048
  2. TRIAMINIC NIGHT TIME COLD + COUGH [Suspect]
     Indication: RHINORRHOEA
     Dosage: UNK, UNK
     Route: 048

REACTIONS (2)
  - Coeliac disease [Not Recovered/Not Resolved]
  - Incorrect dose administered [Unknown]
